FAERS Safety Report 20434032 (Version 2)
Quarter: 2022Q1

REPORT INFORMATION
  Report Type: Spontaneous
  Country: GR (occurrence: GR)
  Receive Date: 20220205
  Receipt Date: 20220307
  Transmission Date: 20220423
  Serious: Yes (Other)
  Sender: FDA-Public Use
  Company Number: GR-NOVARTISPH-NVSC2022GR021665

PATIENT
  Age: 61 Year
  Sex: Male
  Weight: 67 kg

DRUGS (6)
  1. AFINITOR [Suspect]
     Active Substance: EVEROLIMUS
     Indication: Neuroendocrine tumour
     Dosage: 10 MG, QD
     Route: 065
     Dates: start: 202006, end: 2020
  2. AFINITOR [Suspect]
     Active Substance: EVEROLIMUS
     Indication: Pancreatic carcinoma metastatic
     Dosage: 5 MG FOR 7-10 DAYS
     Route: 065
     Dates: start: 2020, end: 2020
  3. AFINITOR [Suspect]
     Active Substance: EVEROLIMUS
     Dosage: 10 MG, QD
     Route: 065
     Dates: start: 2020
  4. PITAVASTATIN [Concomitant]
     Active Substance: PITAVASTATIN
     Indication: Hypercholesterolaemia
     Dosage: 2 G, QD
     Route: 065
     Dates: start: 202011
  5. GLUCOPHAGE [Concomitant]
     Active Substance: METFORMIN HYDROCHLORIDE
     Indication: Diabetes mellitus
     Dosage: 1000 MG, BID
     Route: 065
     Dates: start: 202002
  6. GLUCOPHAGE [Concomitant]
     Active Substance: METFORMIN HYDROCHLORIDE
     Dosage: 1000 MG  2/DAY
     Route: 065
     Dates: start: 202002

REACTIONS (4)
  - Bile duct stone [Not Recovered/Not Resolved]
  - Diarrhoea [Recovered/Resolved]
  - Anaemia [Not Recovered/Not Resolved]
  - Off label use [Unknown]

NARRATIVE: CASE EVENT DATE: 20200201
